FAERS Safety Report 9361706 (Version 1)
Quarter: 2013Q2

REPORT INFORMATION
  Report Type: Spontaneous
  Country: CA (occurrence: CA)
  Receive Date: 20130621
  Receipt Date: 20130621
  Transmission Date: 20140414
  Serious: Yes (Other)
  Sender: FDA-Public Use
  Company Number: PHHY2013CA064009

PATIENT
  Age: 76 Year
  Sex: Male

DRUGS (2)
  1. TEGRETOL [Suspect]
     Dosage: UNK UKN, UNK
  2. PRADAX [Interacting]
     Dosage: UNK UKN, UNK
     Route: 048

REACTIONS (2)
  - Convulsion [Unknown]
  - Drug interaction [Unknown]
